FAERS Safety Report 18431995 (Version 1)
Quarter: 2020Q4

REPORT INFORMATION
  Report Type: Report from Study
  Country: CA (occurrence: CA)
  Receive Date: 20201027
  Receipt Date: 20201027
  Transmission Date: 20210114
  Serious: Yes (Hospitalization)
  Sender: FDA-Public Use
  Company Number: CA-JNJFOC-20201025553

PATIENT
  Age: 15 Year
  Sex: Male
  Weight: 68.2 kg

DRUGS (1)
  1. REMICADE [Suspect]
     Active Substance: INFLIXIMAB
     Indication: CROHN^S DISEASE
     Dosage: FREQUENCY IN DAYS/WEEKS NOT PROVIDED CONSIDERED AS WEEKS.
     Route: 042
     Dates: start: 20200319

REACTIONS (1)
  - Infected fistula [Recovered/Resolved]

NARRATIVE: CASE EVENT DATE: 20200818
